FAERS Safety Report 16974272 (Version 1)
Quarter: 2019Q4

REPORT INFORMATION
  Report Type: Report from Study
  Country: DE (occurrence: DE)
  Receive Date: 20191030
  Receipt Date: 20191030
  Transmission Date: 20200122
  Serious: Yes (Life-Threatening, Hospitalization)
  Sender: FDA-Public Use
  Company Number: PHHY2019DE111802

PATIENT
  Sex: Female
  Weight: 69 kg

DRUGS (15)
  1. STANGYL [Concomitant]
     Active Substance: TRIMIPRAMINE MALEATE
     Indication: PANIC DISORDER
     Dosage: 15 UNK, BID
     Route: 065
     Dates: start: 20170517, end: 20181001
  2. VENLAFAXINE [Concomitant]
     Active Substance: VENLAFAXINE HYDROCHLORIDE
     Indication: PANIC DISORDER
     Dosage: 37.5 MG, UNK
     Route: 065
     Dates: start: 20181029, end: 20181029
  3. STANGYL [Concomitant]
     Active Substance: TRIMIPRAMINE MALEATE
     Dosage: 25 UNK, BID
     Route: 065
     Dates: start: 20181029, end: 20190204
  4. GABAPENTIN. [Concomitant]
     Active Substance: GABAPENTIN
     Dosage: 100 MG, BID
     Route: 065
     Dates: start: 20161214, end: 20170330
  5. MIRTAZAPINE. [Concomitant]
     Active Substance: MIRTAZAPINE
     Indication: DEPRESSION
     Dosage: 15 MG, QD
     Route: 065
     Dates: start: 20161213, end: 20170517
  6. MIRTAZAPINE. [Concomitant]
     Active Substance: MIRTAZAPINE
     Indication: ANXIETY DISORDER
  7. MILNACIPRAN HYDROCHLORIDE. [Concomitant]
     Active Substance: MILNACIPRAN HYDROCHLORIDE
     Dosage: 50-25-0
     Route: 065
     Dates: start: 20190513
  8. MOMETASONE FUROATE. [Concomitant]
     Active Substance: MOMETASONE FUROATE
     Indication: PRODUCT USED FOR UNKNOWN INDICATION
     Dosage: UNK UNK, QOD
     Route: 065
  9. GABAPENTIN. [Concomitant]
     Active Substance: GABAPENTIN
     Indication: NEUROPATHY PERIPHERAL
     Dosage: 100 MG, QD
     Route: 065
     Dates: start: 20161214, end: 20170330
  10. GABAPENTIN. [Concomitant]
     Active Substance: GABAPENTIN
     Dosage: 100 MG, TID
     Route: 065
     Dates: start: 20170330
  11. GILENYA [Suspect]
     Active Substance: FINGOLIMOD HYDROCHLORIDE
     Indication: MULTIPLE SCLEROSIS
     Dosage: 0.5 MG, QD
     Route: 048
     Dates: start: 20170126
  12. TROSPIUM CHLORIDE. [Concomitant]
     Active Substance: TROSPIUM CHLORIDE
     Indication: MICTURITION DISORDER
     Dosage: 15 MG, UNK
     Route: 065
     Dates: start: 20190513
  13. STANGYL [Concomitant]
     Active Substance: TRIMIPRAMINE MALEATE
     Dosage: 25 UNK, BID
     Route: 065
     Dates: start: 20181001, end: 20181029
  14. VALERIANA OFFICINALIS ROOT [Concomitant]
     Active Substance: VALERIAN
     Indication: SLEEP DISORDER
     Dosage: 2 DF, AT NIGHT
     Route: 065
     Dates: start: 20190513
  15. MILNACIPRAN HYDROCHLORIDE. [Concomitant]
     Active Substance: MILNACIPRAN HYDROCHLORIDE
     Indication: DEPRESSION
     Dosage: 25-25-0-0
     Route: 065
     Dates: start: 20190503, end: 20190513

REACTIONS (7)
  - Depression [Not Recovered/Not Resolved]
  - Dysarthria [Not Recovered/Not Resolved]
  - Abdominal discomfort [Not Recovered/Not Resolved]
  - Weight decreased [Unknown]
  - Micturition disorder [Unknown]
  - Suicide attempt [Recovered/Resolved]
  - Visual impairment [Unknown]

NARRATIVE: CASE EVENT DATE: 20190501
